FAERS Safety Report 6713944-2 (Version None)
Quarter: 2010Q2

REPORT INFORMATION
  Report Type: 
  Country: None (occurrence: None)
  Receive Date: 20100504
  Receipt Date: 20100422
  Transmission Date: 20101027
  Serious: Yes (Hospitalization)
  Sender: FDA-Public Use
  Company Number: MSTR-NO-1004S-0123

PATIENT
  Age: 79 Year
  Sex: Male
  Weight: 70 kg

DRUGS (2)
  1. METASTRON [Suspect]
     Indication: METASTATIC PAIN
     Dosage: 132 MBQ, SINGLE DOSE, I.V.
     Route: 042
     Dates: start: 20090707, end: 20090707
  2. ESTRAMUSTINE [Concomitant]

REACTIONS (9)
  - ANAEMIA [None]
  - BONE MARROW FAILURE [None]
  - DISEASE PROGRESSION [None]
  - METASTASES TO BONE [None]
  - NECK PAIN [None]
  - PLATELET COUNT DECREASED [None]
  - PROSTATIC SPECIFIC ANTIGEN INCREASED [None]
  - PYREXIA [None]
  - WHITE BLOOD CELL COUNT DECREASED [None]
